FAERS Safety Report 5144398-8 (Version None)
Quarter: 2006Q4

REPORT INFORMATION
  Report Type: 
  Country: None (occurrence: None)
  Receive Date: 20061030
  Receipt Date: 20060628
  Transmission Date: 20070319
  Serious: Yes (Other)
  Sender: FDA-Public Use
  Company Number: 2006097150

PATIENT
  Age: 39 Year
  Sex: Male

DRUGS (1)
  1. BEXTRA [Suspect]
     Dosage: (10 MG)

REACTIONS (2)
  - DRUG EFFECT DECREASED [None]
  - STEVENS-JOHNSON SYNDROME [None]
